FAERS Safety Report 9141267 (Version 1)
Quarter: 2013Q1

REPORT INFORMATION
  Report Type: Spontaneous
  Country: US (occurrence: US)
  Receive Date: 20130305
  Receipt Date: 20130305
  Transmission Date: 20140127
  Serious: No
  Sender: FDA-Public Use
  Company Number: US-AMGEN-USASP2013007862

PATIENT
  Age: 56 Year
  Sex: Female

DRUGS (2)
  1. ENBREL [Suspect]
     Indication: RHEUMATOID ARTHRITIS
     Dosage: 50 MG, QWK
     Dates: start: 20130112
  2. METHOTREXATE [Concomitant]
     Dosage: 20 MG, QWK

REACTIONS (2)
  - Headache [Not Recovered/Not Resolved]
  - Wheezing [Recovering/Resolving]
